FAERS Safety Report 5058301-2 (Version None)
Quarter: 2006Q2

REPORT INFORMATION
  Report Type: 
  Country: None (occurrence: None)
  Receive Date: 20060622
  Receipt Date: 20060328
  Transmission Date: 20061013
  Serious: Yes (Hospitalization)
  Sender: FDA-Public Use
  Company Number: US-JNJFOC-20060304361

PATIENT
  Age: 34 Year
  Sex: Male
  Weight: 83.9154 kg

DRUGS (12)
  1. DURAGESIC-100 [Suspect]
     Indication: PAIN
     Dosage: SEE IMAGE
     Route: 062
     Dates: start: 20030201, end: 20030801
  2. DURAGESIC-100 [Suspect]
     Indication: PAIN
     Dosage: SEE IMAGE
     Route: 062
     Dates: start: 20030801, end: 20040301
  3. DURAGESIC-100 [Suspect]
     Indication: PAIN
     Dosage: SEE IMAGE
     Route: 062
     Dates: start: 20040301, end: 20050101
  4. DURAGESIC-100 [Suspect]
     Indication: PAIN
     Dosage: SEE IMAGE
     Route: 062
     Dates: start: 20050101, end: 20060101
  5. DURAGESIC-100 [Suspect]
     Indication: PAIN
     Dosage: SEE IMAGE
     Route: 062
     Dates: start: 20060101, end: 20060201
  6. DURAGESIC-100 [Suspect]
     Indication: PAIN
     Dosage: SEE IMAGE
     Route: 062
     Dates: start: 20060201
  7. PEPCID [Concomitant]
  8. ATENOLOL [Concomitant]
  9. ADALAT [Concomitant]
  10. ACIPHEX [Concomitant]
  11. DIOVAN [Concomitant]
  12. LIPITOR [Concomitant]

REACTIONS (5)
  - BACK PAIN [None]
  - FALL [None]
  - HYPOAESTHESIA [None]
  - PYREXIA [None]
  - THERAPEUTIC RESPONSE DECREASED [None]
